FAERS Safety Report 13930940 (Version 1)
Quarter: 2017Q3

REPORT INFORMATION
  Report Type: Spontaneous
  Country: US (occurrence: US)
  Receive Date: 20170902
  Receipt Date: 20170902
  Transmission Date: 20171127
  Serious: No
  Sender: FDA-Public Use
  Company Number: US-TEVA-802003ACC

PATIENT
  Age: 36 Year
  Sex: Female
  Weight: 95.79 kg

DRUGS (2)
  1. AFTERA [Suspect]
     Active Substance: LEVONORGESTREL
     Indication: POST COITAL CONTRACEPTION
     Dates: start: 20170824, end: 20170824
  2. HALDOL [Concomitant]
     Active Substance: HALOPERIDOL
     Indication: POST-TRAUMATIC STRESS DISORDER

REACTIONS (1)
  - Lip swelling [Recovered/Resolved]

NARRATIVE: CASE EVENT DATE: 20170825
